FAERS Safety Report 9441592 (Version 3)
Quarter: 2013Q3

REPORT INFORMATION
  Report Type: Spontaneous
  Country: US (occurrence: US)
  Receive Date: 20130806
  Receipt Date: 20130905
  Transmission Date: 20140515
  Serious: Yes (Death)
  Sender: FDA-Public Use
  Company Number: US-MERCK-1307USA016886

PATIENT
  Age: 76 Year
  Sex: Male

DRUGS (1)
  1. ZOLINZA [Suspect]
     Indication: ADULT T-CELL LYMPHOMA/LEUKAEMIA
     Dosage: 100 MG, QID
     Route: 048
     Dates: start: 20130626, end: 2013

REACTIONS (1)
  - Disease progression [Fatal]
